FAERS Safety Report 6352819-8 (Version None)
Quarter: 2009Q3

REPORT INFORMATION
  Report Type: 
  Country: None (occurrence: None)
  Receive Date: 20090912
  Receipt Date: 20090622
  Transmission Date: 20100115
  Serious: No
  Sender: FDA-Public Use
  Company Number: US-ABBOTT-08P-163-0446382-00

PATIENT
  Sex: Female
  Weight: 59.474 kg

DRUGS (4)
  1. HUMIRA [Suspect]
     Indication: PSORIASIS
     Route: 058
     Dates: start: 20060101, end: 20080306
  2. HUMIRA [Suspect]
  3. HUMIRA [Suspect]
     Indication: PSORIASIS
     Route: 058
     Dates: start: 20080306, end: 20080306
  4. CITALOPRAM HYDROBROMIDE [Concomitant]
     Indication: AFFECTIVE DISORDER

REACTIONS (3)
  - DRUG DELIVERY SYSTEM MALFUNCTION [None]
  - INJECTION SITE PAIN [None]
  - INJECTION SITE URTICARIA [None]
